FAERS Safety Report 16852777 (Version 1)
Quarter: 2019Q3

REPORT INFORMATION
  Report Type: Report from Study
  Country: ES (occurrence: ES)
  Receive Date: 20190925
  Receipt Date: 20190925
  Transmission Date: 20191005
  Serious: Yes (Hospitalization)
  Sender: FDA-Public Use
  Company Number: ES-MYLANLABS-2019M1088927

PATIENT
  Age: 78 Year
  Sex: Male

DRUGS (6)
  1. SIROLIMUS. [Concomitant]
     Active Substance: SIROLIMUS
     Indication: LIVER TRANSPLANT
     Dosage: 2 MILLIGRAM, QD
     Route: 048
     Dates: start: 200607
  2. ALLOPURINOL. [Suspect]
     Active Substance: ALLOPURINOL
     Indication: HYPERURICAEMIA
     Dosage: 100 MILLIGRAM, QD
     Route: 048
     Dates: start: 201705
  3. ACENOCUMAROL [Interacting]
     Active Substance: ACENOCOUMAROL
     Indication: ATRIAL FIBRILLATION
     Dosage: UNK
     Route: 048
     Dates: start: 201612, end: 20190118
  4. PARICALCITOL. [Concomitant]
     Active Substance: PARICALCITOL
     Indication: LIVER TRANSPLANT
     Dosage: 1 MICROGRAM, QD
     Route: 048
     Dates: start: 2017
  5. ATORVASTATIN W/EZETIMIBE [Interacting]
     Active Substance: ATORVASTATIN\EZETIMIBE
     Indication: DYSLIPIDAEMIA
     Dosage: UNK
     Route: 048
     Dates: start: 201605
  6. FUROSEMIDA                         /00032601/ [Concomitant]
     Active Substance: FUROSEMIDE
     Indication: OEDEMA
     Dosage: 40 MILLIGRAM, QD
     Route: 048
     Dates: start: 2013

REACTIONS (2)
  - Drug interaction [Unknown]
  - Haemorrhage intracranial [Recovered/Resolved with Sequelae]

NARRATIVE: CASE EVENT DATE: 20190119
